FAERS Safety Report 7991250-6 (Version None)
Quarter: 2011Q4

REPORT INFORMATION
  Report Type: 
  Country: None (occurrence: None)
  Receive Date: 20111219
  Receipt Date: 20111209
  Transmission Date: 20120403
  Serious: Yes (Hospitalization, Disabling)
  Sender: FDA-Public Use
  Company Number: JP-GLAXOSMITHKLINE-B0768966A

PATIENT
  Sex: Female
  Weight: 46 kg

DRUGS (13)
  1. SYMMETREL [Concomitant]
     Dosage: 150MG PER DAY
     Route: 048
  2. PROMACTA [Suspect]
     Dosage: 50MG PER DAY
     Route: 048
     Dates: start: 20110707, end: 20110926
  3. CALBLOCK [Concomitant]
     Dosage: 16MG PER DAY
     Route: 048
  4. MICARDIS [Concomitant]
     Dosage: 40MG PER DAY
     Route: 048
  5. PREDNISOLONE [Suspect]
     Indication: IDIOPATHIC THROMBOCYTOPENIC PURPURA
     Dosage: 40MG PER DAY
     Route: 048
     Dates: start: 20110630
  6. PROMACTA [Suspect]
     Indication: IDIOPATHIC THROMBOCYTOPENIC PURPURA
     Dosage: 12.5MG PER DAY
     Route: 048
     Dates: start: 20110609, end: 20110615
  7. PROMACTA [Suspect]
     Dosage: 37.5MG PER DAY
     Route: 048
     Dates: start: 20110623, end: 20110706
  8. LANSOPRAZOLE [Concomitant]
     Dosage: 30MG PER DAY
     Route: 048
  9. CLINDAMYCIN HCL [Concomitant]
     Dosage: 1200MG PER DAY
     Dates: start: 20110602, end: 20110613
  10. CARBIDOPA AND LEVODOPA [Concomitant]
     Dosage: 300MG PER DAY
     Route: 048
  11. UNASYN [Concomitant]
     Dosage: 6G PER DAY
     Dates: start: 20110602, end: 20110613
  12. PROMACTA [Suspect]
     Dosage: 25MG PER DAY
     Route: 048
     Dates: start: 20110616, end: 20110622
  13. INDERAL [Concomitant]
     Dosage: 30MG PER DAY
     Route: 048

REACTIONS (3)
  - CEREBRAL INFARCTION [None]
  - HAEMORRHAGIC INFARCTION [None]
  - SUBDURAL HAEMATOMA [None]
